FAERS Safety Report 19251675 (Version 1)
Quarter: 2021Q2

REPORT INFORMATION
  Report Type: Spontaneous
  Country: US (occurrence: US)
  Receive Date: 20210512
  Receipt Date: 20210512
  Transmission Date: 20210717
  Serious: No
  Sender: FDA-Public Use
  Company Number: US-BEH-2021131598

PATIENT
  Age: 20 Year
  Sex: Female

DRUGS (3)
  1. KALBITOR [Concomitant]
     Active Substance: ECALLANTIDE
  2. EPIPEN [Concomitant]
     Active Substance: EPINEPHRINE
  3. HAEGARDA [Suspect]
     Active Substance: HUMAN C1-ESTERASE INHIBITOR
     Indication: PROPHYLAXIS
     Dosage: 7600 INTERNATIONAL UNIT, BIW
     Route: 058
     Dates: start: 20180215

REACTIONS (1)
  - Injection site induration [Not Recovered/Not Resolved]

NARRATIVE: CASE EVENT DATE: 20210503
